FAERS Safety Report 4759006-5 (Version None)
Quarter: 2005Q3

REPORT INFORMATION
  Report Type: 
  Country: None (occurrence: None)
  Receive Date: 20050826
  Receipt Date: 20050812
  Transmission Date: 20060218
  Serious: Yes (Hospitalization)
  Sender: FDA-Public Use
  Company Number: 2005BI015399

PATIENT
  Age: 56 Year
  Sex: Female
  Weight: 74.8435 kg

DRUGS (12)
  1. AVONEX [Suspect]
     Indication: MULTIPLE SCLEROSIS
     Dosage: 30 UG;QW; IM
     Route: 030
     Dates: start: 19980128, end: 20030801
  2. AVONEX [Suspect]
     Indication: MULTIPLE SCLEROSIS
     Dosage: 30 UG;QW; IM
     Route: 030
     Dates: start: 20030801
  3. ADAVIR [Concomitant]
  4. IPRATROPIUM BROMIDE [Concomitant]
  5. LORATADINE [Concomitant]
  6. PROTONIX [Concomitant]
  7. CARAFATE [Concomitant]
  8. DONNATAL [Concomitant]
  9. VASOTEC RPD [Concomitant]
  10. ^TRAZINE^ [Concomitant]
  11. HYOSCYAMINE [Concomitant]
  12. ESTROGEN [Concomitant]

REACTIONS (15)
  - ARTHRITIS [None]
  - BLOOD CHOLESTEROL INCREASED [None]
  - CARPAL TUNNEL SYNDROME [None]
  - DEPRESSION [None]
  - DISORIENTATION [None]
  - FATIGUE [None]
  - HYPOTHYROIDISM [None]
  - HYSTERECTOMY [None]
  - INTERVERTEBRAL DISC DEGENERATION [None]
  - PAIN [None]
  - PANIC DISORDER [None]
  - SINUSITIS [None]
  - SURGERY [None]
  - THINKING ABNORMAL [None]
  - VERTIGO [None]
